FAERS Safety Report 7719177-5 (Version None)
Quarter: 2011Q3

REPORT INFORMATION
  Report Type: 
  Country: None (occurrence: None)
  Receive Date: 20110830
  Receipt Date: 20110825
  Transmission Date: 20111222
  Serious: Yes (Hospitalization)
  Sender: FDA-Public Use
  Company Number: PHHY2011GB75962

PATIENT
  Age: 86 Year
  Sex: Female

DRUGS (7)
  1. METOPROLOL TARTRATE [Suspect]
     Indication: HYPERTENSION
     Dosage: 25 MG, QD
     Route: 048
     Dates: end: 20110802
  2. RAMIPRIL [Suspect]
     Indication: HYPERTENSION
     Dosage: 10 MG, QD
     Route: 048
     Dates: end: 20110802
  3. OMEPRAZOLE [Concomitant]
     Dosage: 20 MG, QD
     Route: 048
  4. ISOSORBIDE MONONITRATE [Concomitant]
     Indication: ANGINA PECTORIS
     Dosage: 25 MG, QD
     Route: 048
  5. CITALOPRAM [Concomitant]
     Indication: DEPRESSION
     Dosage: 10 MG, QD
     Route: 048
  6. FUROSEMIDE [Concomitant]
     Indication: DIURETIC THERAPY
     Dosage: 120 MG, QD
     Route: 048
  7. GALANTAMINE HYDROBROMIDE [Concomitant]
     Indication: DEMENTIA
     Dosage: 8 MG, QD
     Route: 048

REACTIONS (1)
  - LARYNGEAL OEDEMA [None]
